FAERS Safety Report 7959074-3 (Version None)
Quarter: 2011Q4

REPORT INFORMATION
  Report Type: 
  Country: None (occurrence: None)
  Receive Date: 20111206
  Receipt Date: 20111101
  Transmission Date: 20120403
  Serious: Yes (Other)
  Sender: FDA-Public Use
  Company Number: US-GLAXOSMITHKLINE-A0952065A

PATIENT
  Sex: Female

DRUGS (2)
  1. LAMICTAL [Suspect]
     Indication: PARTIAL SEIZURES
     Route: 065
     Dates: start: 20110601
  2. LAMOTRIGINE [Suspect]
     Indication: PARTIAL SEIZURES
     Route: 065

REACTIONS (1)
  - CONVULSION [None]
